FAERS Safety Report 22873659 (Version 2)
Quarter: 2024Q1

REPORT INFORMATION
  Report Type: Spontaneous
  Country: US (occurrence: US)
  Receive Date: 20230828
  Receipt Date: 20240319
  Transmission Date: 20240410
  Serious: Yes (Other)
  Sender: FDA-Public Use
  Company Number: US-ABBVIE-5374606

PATIENT
  Sex: Female

DRUGS (1)
  1. MORPHINE SULFATE [Suspect]
     Active Substance: MORPHINE SULFATE
     Indication: Sedation
     Dosage: FREQUENCY TEXT: ONE TIME
     Route: 065
     Dates: start: 1986, end: 1986

REACTIONS (7)
  - Unresponsive to stimuli [Recovered/Resolved]
  - Hypersomnia [Recovered/Resolved]
  - Illness [Recovered/Resolved]
  - Tremor [Recovered/Resolved]
  - Vomiting [Recovered/Resolved]
  - Lethargy [Recovered/Resolved]
  - Drug hypersensitivity [Unknown]
